FAERS Safety Report 5447029-2 (Version None)
Quarter: 2007Q3

REPORT INFORMATION
  Report Type: 
  Country: None (occurrence: None)
  Receive Date: 20070808
  Receipt Date: 20070308
  Transmission Date: 20080115
  Serious: Yes (Other)
  Sender: FDA-Public Use
  Company Number: 2007019003

PATIENT
  Sex: Female

DRUGS (1)
  1. FLAGYL [Suspect]
     Indication: GIARDIASIS

REACTIONS (3)
  - COGNITIVE DISORDER [None]
  - IMPAIRED WORK ABILITY [None]
  - PARAESTHESIA [None]
